FAERS Safety Report 18250801 (Version 1)
Quarter: 2020Q3

REPORT INFORMATION
  Report Type: Spontaneous
  Country: FR (occurrence: FR)
  Receive Date: 20200909
  Receipt Date: 20200909
  Transmission Date: 20201103
  Serious: Yes (Other)
  Sender: FDA-Public Use
  Company Number: FR-US-PROVELL PHARMACEUTICALS LLC-E2B_90079933

PATIENT
  Sex: Male

DRUGS (6)
  1. LEVOTHYROX [Suspect]
     Active Substance: LEVOTHYROXINE
     Indication: AUTOIMMUNE THYROIDITIS
     Dosage: MORE THAN 14 YEARS
  2. IMUREL                             /00001501/ [Suspect]
     Active Substance: AZATHIOPRINE SODIUM
     Indication: AUTOIMMUNE DISORDER
     Dates: start: 202006
  3. CORTISONE [Suspect]
     Active Substance: CORTISONE
     Indication: AUTOIMMUNE DISORDER
     Dates: start: 202006
  4. CORTISONE [Suspect]
     Active Substance: CORTISONE
     Dosage: DECREASED REGULARLY
     Dates: start: 2020
  5. LEVOTHYROX [Suspect]
     Active Substance: LEVOTHYROXINE
     Dates: start: 2018
  6. LEVOTHYROX [Suspect]
     Active Substance: LEVOTHYROXINE
     Dates: start: 20200829

REACTIONS (3)
  - Fatigue [Unknown]
  - Blood thyroid stimulating hormone increased [Unknown]
  - Autoimmune disorder [Unknown]

NARRATIVE: CASE EVENT DATE: 202006
